FAERS Safety Report 16437051 (Version 18)
Quarter: 2022Q2

REPORT INFORMATION
  Report Type: Report from Study
  Country: US (occurrence: GB)
  Receive Date: 20190614
  Receipt Date: 20220622
  Transmission Date: 20220721
  Serious: Yes (Hospitalization, Congenital Anomaly, Other)
  Sender: FDA-Public Use
  Company Number: US-ABBOTT-12P-167-0966566-00

PATIENT
  Sex: Male
  Weight: 3.1 kg

DRUGS (11)
  1. LOPINAVIR\RITONAVIR [Suspect]
     Active Substance: LOPINAVIR\RITONAVIR
     Indication: Maternal exposure timing unspecified
     Route: 064
  2. ISENTRESS [Suspect]
     Active Substance: RALTEGRAVIR POTASSIUM
     Indication: Maternal exposure timing unspecified
     Route: 064
  3. NEVIRAPINE [Suspect]
     Active Substance: NEVIRAPINE
     Indication: Maternal exposure timing unspecified
     Route: 064
  4. NEVIRAPINE [Suspect]
     Active Substance: NEVIRAPINE
     Indication: Antiretroviral therapy
  5. NEVIRAPINE [Suspect]
     Active Substance: NEVIRAPINE
     Indication: HIV infection
  6. LAMIVUDINE [Suspect]
     Active Substance: LAMIVUDINE
     Indication: Maternal exposure timing unspecified
     Route: 064
  7. VIREAD [Suspect]
     Active Substance: TENOFOVIR DISOPROXIL FUMARATE
     Indication: Maternal exposure timing unspecified
     Route: 064
  8. ZIDOVUDINE [Suspect]
     Active Substance: ZIDOVUDINE
     Indication: Maternal exposure timing unspecified
     Route: 064
  9. TENOFOVIR DISOPROXIL [Suspect]
     Active Substance: TENOFOVIR DISOPROXIL
     Indication: Maternal exposure timing unspecified
     Route: 064
  10. RALTEGRAVIR [Suspect]
     Active Substance: RALTEGRAVIR
     Indication: Maternal exposure timing unspecified
     Route: 064
  11. VIRAMUNE [Suspect]
     Active Substance: NEVIRAPINE
     Indication: Maternal exposure timing unspecified
     Route: 064

REACTIONS (2)
  - Volvulus [Not Recovered/Not Resolved]
  - Foetal exposure during pregnancy [Unknown]
